FAERS Safety Report 5232777-X (Version None)
Quarter: 2007Q1

REPORT INFORMATION
  Report Type: 
  Country: None (occurrence: None)
  Receive Date: 20070206
  Receipt Date: 20070206
  Transmission Date: 20070707
  Serious: Yes (Life-Threatening, Hospitalization)
  Sender: FDA-Public Use
  Company Number: None

PATIENT
  Age: 44 Year
  Sex: Female
  Weight: 76.6579 kg

DRUGS (2)
  1. AUGMENTIN '875' [Suspect]
     Indication: STAPHYLOCOCCAL INFECTION
     Dosage: 1 TABLET BY MOUTH TWICE DAILY
     Route: 048
     Dates: start: 20070117, end: 20070131
  2. SULFAMETH/TRRIMETHOPRIM     800/160      WALGREENS 602 10TH STREET [Suspect]
     Indication: STAPHYLOCOCCAL INFECTION
     Dosage: 1 TABLET BY MOUTH TWICE DAILY
     Route: 048
     Dates: start: 20070125, end: 20070206

REACTIONS (16)
  - CONSTIPATION [None]
  - FAECES DISCOLOURED [None]
  - FATIGUE [None]
  - HAIR TEXTURE ABNORMAL [None]
  - HYPERHIDROSIS [None]
  - INJECTION SITE PAIN [None]
  - MEMORY IMPAIRMENT [None]
  - MOOD ALTERED [None]
  - MUSCULOSKELETAL PAIN [None]
  - MYALGIA [None]
  - NAUSEA [None]
  - NO THERAPEUTIC RESPONSE [None]
  - PALLOR [None]
  - VOMITING [None]
  - WEIGHT INCREASED [None]
  - WRONG DRUG ADMINISTERED [None]
